FAERS Safety Report 8583951-6 (Version None)
Quarter: 2012Q3

REPORT INFORMATION
  Report Type: 
  Country: None (occurrence: None)
  Receive Date: 20120810
  Receipt Date: 20120803
  Transmission Date: 20120928
  Serious: Yes (Hospitalization)
  Sender: FDA-Public Use
  Company Number: ZA-009507513-1208ZAF002833

PATIENT

DRUGS (4)
  1. SERDEP [Concomitant]
     Dosage: 1 UNK,BD
  2. MOLIPAXIN [Concomitant]
     Dosage: 100 MG, AT NIGHT
  3. EZETIMIBE [Suspect]
     Indication: BLOOD CHOLESTEROL
     Dosage: 1 DF, QD
     Route: 048
  4. PUR-BLOKA [Concomitant]
     Dosage: 1 DF, BID

REACTIONS (1)
  - CONVULSION [None]
